FAERS Safety Report 18778178 (Version 1)
Quarter: 2021Q1

REPORT INFORMATION
  Report Type: Spontaneous
  Country: US (occurrence: US)
  Receive Date: 20210123
  Receipt Date: 20210123
  Transmission Date: 20210419
  Serious: Yes (Hospitalization, Other)
  Sender: FDA-Public Use
  Company Number: US-AXELLIA-003653

PATIENT
  Age: 51 Year
  Sex: Female

DRUGS (6)
  1. CEFEPIME [Concomitant]
     Active Substance: CEFEPIME HYDROCHLORIDE
     Indication: EMPYEMA
  2. VANCOMYCIN [Suspect]
     Active Substance: VANCOMYCIN
     Indication: EMPYEMA
  3. CEFEPIME [Concomitant]
     Active Substance: CEFEPIME HYDROCHLORIDE
     Indication: LUNG ABSCESS
  4. METRONIDAZOLE. [Concomitant]
     Active Substance: METRONIDAZOLE
     Indication: LUNG ABSCESS
  5. VANCOMYCIN [Suspect]
     Active Substance: VANCOMYCIN
     Indication: LUNG ABSCESS
  6. METRONIDAZOLE. [Concomitant]
     Active Substance: METRONIDAZOLE
     Indication: EMPYEMA

REACTIONS (7)
  - Nephropathy toxic [Recovering/Resolving]
  - Off label use [Unknown]
  - Immune thrombocytopenia [Recovering/Resolving]
  - Thrombotic thrombocytopenic purpura [Recovering/Resolving]
  - Drug level increased [Recovering/Resolving]
  - Thrombotic microangiopathy [Recovering/Resolving]
  - Acute kidney injury [Recovering/Resolving]
